FAERS Safety Report 5964915-5 (Version None)
Quarter: 2008Q4

REPORT INFORMATION
  Report Type: 
  Country: None (occurrence: None)
  Receive Date: 20081125
  Receipt Date: 20081117
  Transmission Date: 20090506
  Serious: Yes (Hospitalization)
  Sender: FDA-Public Use
  Company Number: JP-SANOFI-SYNTHELABO-A01200813750

PATIENT
  Sex: Female
  Weight: 40 kg

DRUGS (7)
  1. BLOPRESS [Concomitant]
     Indication: HYPERTENSION
     Route: 048
     Dates: start: 20070507
  2. SENNOSIDE [Concomitant]
     Indication: CONSTIPATION
     Route: 048
     Dates: start: 20051126
  3. KETAS [Concomitant]
     Indication: CEREBRAL INFARCTION
     Route: 048
     Dates: start: 20070507
  4. PERDIPINE LA [Concomitant]
     Indication: HYPERTENSION
     Route: 048
     Dates: start: 19950221
  5. LOXOT [Concomitant]
     Indication: OSTEOARTHRITIS
     Route: 048
     Dates: start: 20020517
  6. PLAVIX [Suspect]
     Indication: CEREBRAL INFARCTION
     Route: 048
     Dates: start: 20080929, end: 20081023
  7. ALFEASULY [Concomitant]
     Indication: OSTEOPOROSIS
     Route: 048
     Dates: start: 19970410

REACTIONS (3)
  - CHOLESTASIS [None]
  - JAUNDICE [None]
  - LIVER DISORDER [None]
